FAERS Safety Report 6659718-2 (Version None)
Quarter: 2010Q1

REPORT INFORMATION
  Report Type: 
  Country: None (occurrence: None)
  Receive Date: 20100326
  Receipt Date: 20100317
  Transmission Date: 20100710
  Serious: No
  Sender: FDA-Public Use
  Company Number: 009210

PATIENT
  Age: 76 Year
  Sex: Male

DRUGS (2)
  1. PLETAL [Suspect]
     Dosage: ORAL
     Route: 048
  2. PLAVIX [Concomitant]

REACTIONS (1)
  - CEREBELLAR HAEMORRHAGE [None]
